FAERS Safety Report 17440105 (Version 1)
Quarter: 2020Q1

REPORT INFORMATION
  Report Type: Spontaneous
  Country: FR (occurrence: FR)
  Receive Date: 20200220
  Receipt Date: 20200220
  Transmission Date: 20200409
  Serious: Yes (Hospitalization)
  Sender: FDA-Public Use
  Company Number: FR-BRISTOL-MYERS SQUIBB COMPANY-BMS-2020-011751

PATIENT
  Age: 84 Year
  Sex: Female
  Weight: 42.5 kg

DRUGS (1)
  1. HYDREA [Suspect]
     Active Substance: HYDROXYUREA
     Indication: THROMBOCYTOSIS
     Dosage: 500 MILLIGRAM, PER DAY
     Route: 048
     Dates: start: 20190304, end: 201909

REACTIONS (2)
  - Skin ulcer [Recovering/Resolving]
  - Eschar [Recovering/Resolving]

NARRATIVE: CASE EVENT DATE: 201908
